FAERS Safety Report 8581681-8 (Version None)
Quarter: 2012Q2

REPORT INFORMATION
  Report Type: 
  Country: None (occurrence: None)
  Receive Date: 20120423
  Receipt Date: 20101005
  Transmission Date: 20120825
  Serious: Yes (Hospitalization)
  Sender: FDA-Public Use
  Company Number: PHHY2010US47145

PATIENT
  Age: 36 Year
  Sex: Female
  Weight: 95.3 kg

DRUGS (3)
  1. PHENERGAN HCL [Concomitant]
  2. TYLOX [Concomitant]
  3. EXJADE [Suspect]
     Indication: SICKLE CELL ANAEMIA
     Dosage: 2000 MG, QD, ORAL
     Route: 048
     Dates: start: 20100712, end: 20100717

REACTIONS (13)
  - TREMOR [None]
  - ABDOMINAL PAIN [None]
  - CHILLS [None]
  - NAUSEA [None]
  - BONE PAIN [None]
  - DIARRHOEA [None]
  - PAIN [None]
  - ABASIA [None]
  - JOINT SWELLING [None]
  - FATIGUE [None]
  - SICKLE CELL ANAEMIA WITH CRISIS [None]
  - VOMITING [None]
  - ERUCTATION [None]
